FAERS Safety Report 8490607-7 (Version None)
Quarter: 2012Q3

REPORT INFORMATION
  Report Type: 
  Country: None (occurrence: None)
  Receive Date: 20120705
  Receipt Date: 20120625
  Transmission Date: 20120928
  Serious: Yes (Death, Life-Threatening, Hospitalization, Other)
  Sender: FDA-Public Use
  Company Number: GR-ABBOTT-12P-066-0949881-00

PATIENT
  Sex: Male
  Weight: 55 kg

DRUGS (4)
  1. HUMIRA [Suspect]
     Indication: CROHN'S DISEASE
     Dosage: INDUCTION: 160 MG (BASELINE)
     Route: 058
     Dates: start: 20091020, end: 20091020
  2. HUMIRA [Suspect]
     Dosage: (WEEK 2)
     Route: 058
  3. HUMIRA [Suspect]
     Route: 058
  4. HUMIRA [Suspect]
     Route: 058
     Dates: start: 20120330, end: 20120508

REACTIONS (7)
  - SEPSIS [None]
  - METABOLIC ACIDOSIS [None]
  - CROHN'S DISEASE [None]
  - MULTI-ORGAN FAILURE [None]
  - PNEUMONIA [None]
  - DISSEMINATED INTRAVASCULAR COAGULATION [None]
  - PNEUMOTHORAX TRAUMATIC [None]
